FAERS Safety Report 25441175 (Version 1)
Quarter: 2025Q2

REPORT INFORMATION
  Report Type: Spontaneous
  Country: PL (occurrence: PL)
  Receive Date: 20250616
  Receipt Date: 20250616
  Transmission Date: 20250716
  Serious: Yes (Other)
  Sender: ELI LILLY AND COMPANY
  Company Number: PL-009507513-2287698

PATIENT
  Age: 74 Year
  Sex: Male

DRUGS (3)
  1. PEMETREXED [Suspect]
     Active Substance: PEMETREXED
     Indication: Lung adenocarcinoma stage IV
     Route: 065
  2. PEMBROLIZUMAB [Suspect]
     Active Substance: PEMBROLIZUMAB
     Indication: Lung adenocarcinoma stage IV
     Route: 065
  3. CARBOPLATIN [Suspect]
     Active Substance: CARBOPLATIN
     Indication: Lung adenocarcinoma stage IV
     Route: 065

REACTIONS (6)
  - Hypothyroidism [Unknown]
  - Psychomotor retardation [Unknown]
  - Oedema peripheral [Unknown]
  - Constipation [Unknown]
  - Decreased appetite [Unknown]
  - Asthenia [Unknown]

NARRATIVE: CASE EVENT DATE: 20230101
